FAERS Safety Report 11006023 (Version 3)
Quarter: 2015Q2

REPORT INFORMATION
  Report Type: Spontaneous
  Country: CO (occurrence: CO)
  Receive Date: 20150409
  Receipt Date: 20150421
  Transmission Date: 20150821
  Serious: Yes (Hospitalization)
  Sender: FDA-Public Use
  Company Number: CO-ASTRAZENECA-2015SE32220

PATIENT
  Age: 64 Year
  Sex: Female

DRUGS (7)
  1. ASA [Concomitant]
     Active Substance: ASPIRIN
  2. INSULIN ASPARTA [Concomitant]
     Indication: TYPE 2 DIABETES MELLITUS
  3. METFORMIN [Concomitant]
     Active Substance: METFORMIN HYDROCHLORIDE
  4. INSULIN DETEMIR [Concomitant]
     Active Substance: INSULIN DETEMIR
  5. LOSARTAN [Concomitant]
     Active Substance: LOSARTAN
  6. AMLODIPINE [Concomitant]
     Active Substance: AMLODIPINE BESYLATE
  7. BYDUREON [Suspect]
     Active Substance: EXENATIDE
     Indication: TYPE 2 DIABETES MELLITUS
     Route: 058
     Dates: end: 20150329

REACTIONS (6)
  - Skin lesion [Recovered/Resolved]
  - Vasculitis [Unknown]
  - Malaise [Recovered/Resolved]
  - Nausea [Not Recovered/Not Resolved]
  - Hypersensitivity [Recovered/Resolved]
  - Pyrexia [Recovered/Resolved]

NARRATIVE: CASE EVENT DATE: 20150330
